FAERS Safety Report 9068778 (Version 1)
Quarter: 2013Q1

REPORT INFORMATION
  Report Type: Spontaneous
  Country: US (occurrence: None)
  Receive Date: 20130212
  Receipt Date: 20130212
  Transmission Date: 20140127
  Serious: No
  Sender: FDA-Public Use
  Company Number: None

PATIENT
  Sex: Female
  Weight: 66.23 kg

DRUGS (1)
  1. COLCRYS [Suspect]
     Indication: GOUT
     Dosage: 1 TABLET 4X DAILY ORAL
     Route: 048
     Dates: start: 20130125

REACTIONS (3)
  - Diarrhoea [None]
  - Asthenia [None]
  - Dizziness [None]
